FAERS Safety Report 8781829 (Version 2)
Quarter: 2012Q4

REPORT INFORMATION
  Report Type: 
  Country: US (occurrence: US)
  Receive Date: 20120913
  Receipt Date: 20121002
  Transmission Date: 20130627
  Serious: No
  Sender: FDA-Public Use
  Company Number: US-PFIZER INC-2012225763

PATIENT
  Age: 45 Year
  Sex: Female
  Weight: 73.47 kg

DRUGS (5)
  1. LYRICA [Suspect]
     Indication: FIBROMYALGIA
     Dosage: 200 mg, 3x/day
     Dates: start: 200809, end: 20120817
  2. CLONIDINE [Concomitant]
     Indication: NEURALGIA
     Dosage: 25 ug, daily
  3. CLONIDINE [Concomitant]
     Indication: SLEEP DISORDER
  4. LAMICTAL [Concomitant]
     Indication: NEURALGIA
     Dosage: 100 mg, 3x/day
  5. VOLTAREN [Concomitant]
     Indication: ANTIINFLAMMATORY THERAPY
     Dosage: 75 mg, 2x/day

REACTIONS (3)
  - Malaise [Not Recovered/Not Resolved]
  - Pain in extremity [Not Recovered/Not Resolved]
  - Back pain [Not Recovered/Not Resolved]
